FAERS Safety Report 22286514 (Version 1)
Quarter: 2023Q2

REPORT INFORMATION
  Report Type: Spontaneous
  Country: US (occurrence: US)
  Receive Date: 20230505
  Receipt Date: 20230505
  Transmission Date: 20230721
  Serious: No
  Sender: FDA-Public Use
  Company Number: US-JNJFOC-20230444395

PATIENT
  Age: 84 Year
  Sex: Male

DRUGS (3)
  1. ZYRTEC [Suspect]
     Active Substance: CETIRIZINE HYDROCHLORIDE
     Indication: Neck pain
     Dosage: 1 PILL AT MORNING 8:30 AM AND THEN TOOK ONE PILL AT 11 AM
     Route: 065
     Dates: start: 20230419
  2. ZYRTEC [Suspect]
     Active Substance: CETIRIZINE HYDROCHLORIDE
     Dosage: PATIENT STARTED THE PRODUCT A WEEK AGO AND TAKE 1 PILL OF ZYRTEC EACH DAY
     Route: 065
     Dates: start: 202304
  3. CYCLOBENZAPRINE [Concomitant]
     Active Substance: CYCLOBENZAPRINE
     Indication: Neck pain
     Route: 065

REACTIONS (2)
  - Accidental overdose [Unknown]
  - Off label use [Unknown]

NARRATIVE: CASE EVENT DATE: 20230401
